FAERS Safety Report 7356548-3 (Version None)
Quarter: 2011Q1

REPORT INFORMATION
  Report Type: 
  Country: None (occurrence: None)
  Receive Date: 20110316
  Receipt Date: 20110302
  Transmission Date: 20110831
  Serious: Yes (Other)
  Sender: FDA-Public Use
  Company Number: PHHY2011US17519

PATIENT
  Sex: Female

DRUGS (12)
  1. LISINOPRIL [Concomitant]
     Dosage: 40 MG, UNK
  2. CRAN-MAX VEGGIE [Concomitant]
     Dosage: 500 MG, DAILY
     Route: 048
  3. PRILOSEC [Concomitant]
  4. LIPITOR [Concomitant]
     Dosage: 10 MG, UNK
  5. COQ10 [Concomitant]
     Dosage: 100 MG, UNK
  6. AGGRENOX [Concomitant]
  7. B12 DOTS [Concomitant]
     Dosage: 500 MG, UNK
  8. FISH OIL [Concomitant]
  9. TEKTURNA [Suspect]
     Dosage: 150 MG, DAILY
     Route: 048
  10. SYNTHROID [Concomitant]
  11. BIOTIN [Concomitant]
  12. VITAMIN D [Concomitant]

REACTIONS (5)
  - PRESYNCOPE [None]
  - DIARRHOEA HAEMORRHAGIC [None]
  - COLD SWEAT [None]
  - BOWEL MOVEMENT IRREGULARITY [None]
  - MUSCLE SPASMS [None]
